FAERS Safety Report 8986301 (Version 3)
Quarter: 2013Q2

REPORT INFORMATION
  Report Type: Spontaneous
  Country: US (occurrence: None)
  Receive Date: 20121105
  Receipt Date: 20130411
  Transmission Date: 20140414
  Serious: Yes (Hospitalization)
  Sender: FDA-Public Use
  Company Number: 141110

PATIENT
  Age: 78 Year
  Sex: Male
  Weight: 69 kg

DRUGS (10)
  1. LEUCOVORIN CALCIUM [Suspect]
     Indication: COLORECTAL CANCER
     Route: 042
     Dates: start: 20120924, end: 20121009
  2. METOPROLOL [Concomitant]
  3. HYDROCHLOROTHIAZIDE [Concomitant]
  4. VALSARTAN [Concomitant]
  5. METFORMIN [Concomitant]
  6. DUTASTERIDE [Concomitant]
  7. GLIBENCLAMIDE [Concomitant]
  8. ACETYLSALICYLIC ACID [Concomitant]
  9. AMIODIPINE BESYLATE 2.5 MG, GREENSTONE BRAND [Concomitant]
  10. LORAZEPAM [Concomitant]

REACTIONS (12)
  - Acute coronary syndrome [None]
  - Pulmonary oedema [None]
  - Pleural effusion [None]
  - Left ventricular dysfunction [None]
  - Aortic valve incompetence [None]
  - Aortic arteriosclerosis [None]
  - Mitral valve sclerosis [None]
  - Mitral valve incompetence [None]
  - Sinus tachycardia [None]
  - Bundle branch block right [None]
  - Bifascicular block [None]
  - Infection [None]
